FAERS Safety Report 25556375 (Version 1)
Quarter: 2025Q3

REPORT INFORMATION
  Report Type: Spontaneous
  Country: EU (occurrence: EU)
  Receive Date: 20250715
  Receipt Date: 20250715
  Transmission Date: 20251020
  Serious: Yes (Other)
  Sender: REGENERON
  Company Number: None

PATIENT
  Age: 76 Year
  Sex: Male

DRUGS (1)
  1. LIBTAYO [Suspect]
     Active Substance: CEMIPLIMAB-RWLC
     Indication: Basal cell carcinoma metastatic
     Route: 042
     Dates: start: 20240424, end: 20241231

REACTIONS (1)
  - Lichen planus pemphigoides [Recovering/Resolving]

NARRATIVE: CASE EVENT DATE: 20241101
